FAERS Safety Report 19949909 (Version 5)
Quarter: 2022Q1

REPORT INFORMATION
  Report Type: Other
  Country: LB (occurrence: None)
  Receive Date: 20211013
  Receipt Date: 20220107
  Transmission Date: 20220423
  Serious: Yes (Hospitalization, Other)
  Sender: FDA-Public Use
  Company Number: LB-ROCHE-2822046

PATIENT
  Sex: Female

DRUGS (1)
  1. TECENTRIQ [Suspect]
     Active Substance: ATEZOLIZUMAB
     Indication: Lung neoplasm malignant
     Route: 041
     Dates: start: 20201126, end: 20211110

REACTIONS (9)
  - Infection [Not Recovered/Not Resolved]
  - Pyrexia [Unknown]
  - Hypoxia [Unknown]
  - Tonsillitis [Unknown]
  - Metastases to central nervous system [Not Recovered/Not Resolved]
  - Seizure [Recovering/Resolving]
  - Urinary tract infection [Recovering/Resolving]
  - Gait inability [Unknown]
  - Drug ineffective [Unknown]

NARRATIVE: CASE EVENT DATE: 20210425
